FAERS Safety Report 9349386 (Version 1)
Quarter: 2013Q2

REPORT INFORMATION
  Report Type: Spontaneous
  Country: FR (occurrence: FR)
  Receive Date: 20130614
  Receipt Date: 20130614
  Transmission Date: 20140414
  Serious: Yes (Hospitalization, Other)
  Sender: FDA-Public Use
  Company Number: FR-BRISTOL-MYERS SQUIBB COMPANY-19004167

PATIENT
  Age: 78 Year
  Sex: Male

DRUGS (17)
  1. COUMADINE [Suspect]
     Indication: THROMBOSIS PROPHYLAXIS
     Dosage: TABS?UNK-24NOV2012?19DEC2012-26DEC2012
     Route: 048
     Dates: end: 20121226
  2. KEPPRA [Concomitant]
  3. LASILIX [Concomitant]
  4. TARDYFERON [Concomitant]
  5. SPECIAFOLDINE [Concomitant]
  6. FORLAX [Concomitant]
  7. BRICANYL [Concomitant]
  8. BUDESONIDE [Concomitant]
  9. CORDARONE [Concomitant]
  10. INEXIUM [Concomitant]
  11. IMOVANE [Concomitant]
  12. CALCIDOSE [Concomitant]
  13. VITAMIN D3 [Concomitant]
  14. MIRTAZAPINE [Concomitant]
  15. PRIMPERAN [Concomitant]
  16. DAFALGAN [Concomitant]
  17. CONTRAMAL [Concomitant]

REACTIONS (3)
  - Subdural haematoma [Recovering/Resolving]
  - Fall [Unknown]
  - Craniocerebral injury [Unknown]
